FAERS Safety Report 6016864-4 (Version None)
Quarter: 2008Q4

REPORT INFORMATION
  Report Type: 
  Country: None (occurrence: None)
  Receive Date: 20081222
  Receipt Date: 20081217
  Transmission Date: 20090506
  Serious: Yes (Other)
  Sender: FDA-Public Use
  Company Number: US-MERCK-0810USA05127

PATIENT
  Age: 9 Year
  Sex: Female
  Weight: 26 kg

DRUGS (5)
  1. SINGULAIR [Suspect]
     Indication: ASTHMA
     Route: 048
     Dates: end: 20080905
  2. SINGULAIR [Suspect]
     Indication: HYPERSENSITIVITY
     Route: 048
     Dates: end: 20080905
  3. CONCERTA [Concomitant]
     Route: 065
  4. STRATTERA [Concomitant]
     Route: 065
  5. PROVENTIL [Concomitant]
     Route: 065

REACTIONS (5)
  - ABNORMAL BEHAVIOUR [None]
  - ANGER [None]
  - CRYING [None]
  - DEPRESSION [None]
  - SUICIDAL IDEATION [None]
